FAERS Safety Report 16379122 (Version 1)
Quarter: 2019Q2

REPORT INFORMATION
  Report Type: Spontaneous
  Country: US (occurrence: US)
  Receive Date: 20190531
  Receipt Date: 20190531
  Transmission Date: 20190711
  Serious: No
  Sender: FDA-Public Use
  Company Number: US-SIGMAPHARM LABORATORIES, LLC-2019SIG00054

PATIENT
  Age: 63 Year
  Sex: Female
  Weight: 104.31 kg

DRUGS (6)
  1. ACCUPRIL [Concomitant]
     Active Substance: QUINAPRIL HYDROCHLORIDE
  2. SYNTHROID [Concomitant]
     Active Substance: LEVOTHYROXINE SODIUM
  3. LOVASTATIN. [Concomitant]
     Active Substance: LOVASTATIN
  4. METFORMIN [Concomitant]
     Active Substance: METFORMIN HYDROCHLORIDE
  5. COENZYME Q10 [Concomitant]
     Active Substance: UBIDECARENONE
  6. ACITRETIN. [Suspect]
     Active Substance: ACITRETIN
     Indication: PSORIASIS
     Dosage: 25 MG, 1X/DAY
     Route: 048
     Dates: end: 201807

REACTIONS (5)
  - Tongue discolouration [Not Recovered/Not Resolved]
  - Skin odour abnormal [Not Recovered/Not Resolved]
  - Lipids increased [Recovered/Resolved]
  - Blood triglycerides increased [Recovered/Resolved]
  - Skin disorder [Not Recovered/Not Resolved]

NARRATIVE: CASE EVENT DATE: 201712
